FAERS Safety Report 15130512 (Version 1)
Quarter: 2018Q3

REPORT INFORMATION
  Report Type: Spontaneous
  Country: US (occurrence: US)
  Receive Date: 20180711
  Receipt Date: 20180711
  Transmission Date: 20181010
  Serious: No
  Sender: FDA-Public Use
  Company Number: US-BEH-2018092630

PATIENT
  Age: 76 Year
  Sex: Female

DRUGS (12)
  1. GLUCOSAMINE [Concomitant]
     Active Substance: GLUCOSAMINE
  2. HAEGARDA [Suspect]
     Active Substance: HUMAN C1-ESTERASE INHIBITOR
     Indication: PROPHYLAXIS
  3. LEVOXYL [Concomitant]
     Active Substance: LEVOTHYROXINE SODIUM
  4. HYDROCHLOROTHIAZIDE. [Concomitant]
     Active Substance: HYDROCHLOROTHIAZIDE
  5. HAEGARDA [Suspect]
     Active Substance: HUMAN C1-ESTERASE INHIBITOR
     Indication: HEREDITARY ANGIOEDEMA
     Dosage: 4000 IU, BIW
     Route: 058
     Dates: start: 20180322
  6. BILBERRY                           /01397601/ [Concomitant]
     Active Substance: BILBERRY
  7. PREMARIN [Concomitant]
     Active Substance: ESTROGENS, CONJUGATED
  8. FISH OIL [Concomitant]
     Active Substance: FISH OIL
  9. BETIMOL [Concomitant]
     Active Substance: TIMOLOL
  10. KCL [Concomitant]
     Active Substance: POTASSIUM CHLORIDE
  11. POTASSIUM [Concomitant]
     Active Substance: POTASSIUM
  12. BERINERT [Suspect]
     Active Substance: HUMAN C1-ESTERASE INHIBITOR
     Indication: HEREDITARY ANGIOEDEMA
     Dosage: 1500 IU, PRN
     Route: 042
     Dates: start: 20180404

REACTIONS (1)
  - Contusion [Unknown]

NARRATIVE: CASE EVENT DATE: 2018
